FAERS Safety Report 4847443-X (Version None)
Quarter: 2005Q4

REPORT INFORMATION
  Report Type: 
  Country: None (occurrence: None)
  Receive Date: 20051202
  Receipt Date: 20051116
  Transmission Date: 20060501
  Serious: Yes (Death)
  Sender: FDA-Public Use
  Company Number: S05-UKI-03794-01

PATIENT
  Age: 38 Year
  Sex: Female

DRUGS (3)
  1. CITALOPRAM HYDROBROMIDE [Suspect]
     Indication: ANXIETY
     Dosage: 40 MG QD PO
     Route: 048
     Dates: start: 20050413
  2. CITALOPRAM HYDROBROMIDE [Suspect]
     Indication: DEPRESSION
     Dosage: 40 MG QD PO
     Route: 048
     Dates: start: 20050413
  3. POTASSIUM CHLORIDE [Suspect]
     Indication: BLOOD POTASSIUM DECREASED
     Dosage: 2 TABLET BID PO
     Route: 048
     Dates: start: 20050628

REACTIONS (13)
  - ALCOHOL USE [None]
  - CARDIAC ARREST [None]
  - DRUG LEVEL INCREASED [None]
  - DRUG TOXICITY [None]
  - GASTRIC HAEMORRHAGE [None]
  - GASTRITIS [None]
  - HEPATIC STEATOSIS [None]
  - HYPERKALAEMIA [None]
  - MALAISE [None]
  - NAUSEA [None]
  - OVERDOSE [None]
  - SUDDEN DEATH [None]
  - VOMITING [None]
